FAERS Safety Report 16012316 (Version 1)
Quarter: 2019Q1

REPORT INFORMATION
  Report Type: Spontaneous
  Country: US (occurrence: US)
  Receive Date: 20190130
  Receipt Date: 20190130
  Transmission Date: 20190418
  Serious: No
  Sender: FDA-Public Use
  Company Number: None

PATIENT
  Age: 78 Year
  Sex: Male

DRUGS (1)
  1. ORENCIA [Suspect]
     Active Substance: ABATACEPT
     Indication: RHEUMATOID ARTHRITIS
     Dosage: OTHER
     Route: 060
     Dates: start: 201708, end: 201901

REACTIONS (7)
  - Drug ineffective [None]
  - Pain [None]
  - Disease recurrence [None]
  - Rash [None]
  - Pruritus [None]
  - Erythema [None]
  - Blister [None]

NARRATIVE: CASE EVENT DATE: 20190130
